FAERS Safety Report 15113159 (Version 1)
Quarter: 2018Q3

REPORT INFORMATION
  Report Type: Spontaneous
  Country: US (occurrence: US)
  Receive Date: 20180706
  Receipt Date: 20180706
  Transmission Date: 20181010
  Serious: Yes (Other)
  Sender: FDA-Public Use
  Company Number: US-ROCHE-2149292

PATIENT
  Sex: Female
  Weight: 56.75 kg

DRUGS (2)
  1. OCREVUS [Suspect]
     Active Substance: OCRELIZUMAB
     Route: 065
     Dates: start: 20171221
  2. OCREVUS [Suspect]
     Active Substance: OCRELIZUMAB
     Indication: MULTIPLE SCLEROSIS
     Route: 065
     Dates: start: 201712

REACTIONS (9)
  - Formication [Not Recovered/Not Resolved]
  - Multiple sclerosis relapse [Unknown]
  - Vestibular migraine [Unknown]
  - Nausea [Unknown]
  - Pain [Not Recovered/Not Resolved]
  - Colitis [Unknown]
  - Endometriosis [Unknown]
  - Dizziness [Unknown]
  - Vertigo [Unknown]
